FAERS Safety Report 16463632 (Version 1)
Quarter: 2019Q3

REPORT INFORMATION
  Report Type: Spontaneous
  Country: US (occurrence: US)
  Receive Date: 20190620
  Receipt Date: 20190620
  Transmission Date: 20191004
  Serious: Yes (Other)
  Sender: FDA-Public Use
  Company Number: None

PATIENT
  Age: 65 Year
  Sex: Female
  Weight: 130.5 kg

DRUGS (4)
  1. ZINC. [Concomitant]
     Active Substance: ZINC
  2. BYSTOLIC [Concomitant]
     Active Substance: NEBIVOLOL HYDROCHLORIDE
  3. MG [Concomitant]
     Active Substance: MAGNESIUM
  4. OLMESARTAN HCT [Suspect]
     Active Substance: HYDROCHLOROTHIAZIDE\OLMESARTAN MEDOXOMIL
     Indication: HYPERTENSION
     Dosage: ?          QUANTITY:1 TABLET(S);?
     Route: 048

REACTIONS (3)
  - Blood potassium decreased [None]
  - Blood magnesium decreased [None]
  - Ventricular extrasystoles [None]

NARRATIVE: CASE EVENT DATE: 20190617
